FAERS Safety Report 6381497-7 (Version None)
Quarter: 2009Q3

REPORT INFORMATION
  Report Type: 
  Country: None (occurrence: None)
  Receive Date: 20090924
  Receipt Date: 20090914
  Transmission Date: 20100115
  Serious: Yes (Death)
  Sender: FDA-Public Use
  Company Number: AE-2009-195

PATIENT
  Age: 49 Year
  Sex: Male

DRUGS (5)
  1. ATENOLOL [Suspect]
     Dosage: ORAL
     Route: 048
  2. RISPERIDONE [Suspect]
     Dosage: ORAL
     Route: 048
  3. ALPHA BLOCKER [Suspect]
     Dosage: ORAL
     Route: 048
  4. AMANTADINE HCL [Suspect]
     Dosage: ORAL
     Route: 048
  5. L-DOPA [Suspect]
     Dosage: ORAL
     Route: 048

REACTIONS (1)
  - COMPLETED SUICIDE [None]
